FAERS Safety Report 6542123-7 (Version None)
Quarter: 2010Q1

REPORT INFORMATION
  Report Type: 
  Country: None (occurrence: None)
  Receive Date: 20100119
  Receipt Date: 20100112
  Transmission Date: 20100710
  Serious: Yes (Hospitalization, Other)
  Sender: FDA-Public Use
  Company Number: US-JNJFOC-20100105008

PATIENT
  Sex: Female
  Weight: 50.2 kg

DRUGS (2)
  1. INFLIXIMAB [Suspect]
     Indication: CROHN'S DISEASE
     Route: 042
  2. BUDESONIDE [Concomitant]

REACTIONS (2)
  - CROHN'S DISEASE [None]
  - SCHOOL REFUSAL [None]
